FAERS Safety Report 15155851 (Version 1)
Quarter: 2018Q3

REPORT INFORMATION
  Report Type: Spontaneous
  Country: AT (occurrence: AT)
  Receive Date: 20180717
  Receipt Date: 20180717
  Transmission Date: 20181010
  Serious: Yes (Hospitalization)
  Sender: FDA-Public Use
  Company Number: AT-US WORLDMEDS, LLC-STA_00018497

PATIENT
  Age: 73 Year
  Sex: Male
  Weight: 66 kg

DRUGS (4)
  1. T?ASS 100MG [Concomitant]
     Indication: PRODUCT USED FOR UNKNOWN INDICATION
  2. LASIX 40MG [Concomitant]
     Indication: PRODUCT USED FOR UNKNOWN INDICATION
  3. APOMORPHINE HYDROCHLORIDE [Suspect]
     Active Substance: APOMORPHINE HYDROCHLORIDE
     Indication: PARKINSON^S DISEASE
     Route: 058
     Dates: start: 201202
  4. GASTROZOL 40 MG [Concomitant]
     Indication: PRODUCT USED FOR UNKNOWN INDICATION

REACTIONS (4)
  - Injection site discolouration [Not Recovered/Not Resolved]
  - Injection site nodule [Not Recovered/Not Resolved]
  - Hypersexuality [Recovered/Resolved]
  - Injection site necrosis [Not Recovered/Not Resolved]

NARRATIVE: CASE EVENT DATE: 20130512
